FAERS Safety Report 24896496 (Version 1)
Quarter: 2025Q1

REPORT INFORMATION
  Report Type: Spontaneous
  Country: US (occurrence: US)
  Receive Date: 20250128
  Receipt Date: 20250128
  Transmission Date: 20250409
  Serious: No
  Sender: SANOFI AVENTIS
  Company Number: US-SA-2025SA025813

PATIENT
  Sex: Female

DRUGS (14)
  1. DUPIXENT [Suspect]
     Active Substance: DUPILUMAB
     Indication: Pemphigus
     Route: 058
  2. BRIMONIDINE [Concomitant]
     Active Substance: BRIMONIDINE TARTRATE
  3. VYZULTA [Concomitant]
     Active Substance: LATANOPROSTENE BUNOD
  4. ASPIRIN [Concomitant]
     Active Substance: ASPIRIN
  5. CALTRATE [Concomitant]
     Active Substance: CALCIUM CARBONATE
  6. DORZOLAMIDE [Concomitant]
     Active Substance: DORZOLAMIDE
  7. HYDROCHLOROTHIAZIDE [Concomitant]
     Active Substance: HYDROCHLOROTHIAZIDE
  8. LATANOPROST [Concomitant]
     Active Substance: LATANOPROST
  9. LOSARTAN POTASSIUM [Concomitant]
     Active Substance: LOSARTAN POTASSIUM
  10. MAGNESIUM OXIDE [Concomitant]
     Active Substance: MAGNESIUM OXIDE
  11. METOPROLOL SUCCINATE [Concomitant]
     Active Substance: METOPROLOL SUCCINATE
  12. PANTOPRAZOLE [Concomitant]
     Active Substance: PANTOPRAZOLE
  13. ROGAINE [Concomitant]
     Active Substance: MINOXIDIL
  14. FLUTICASONE [Concomitant]
     Active Substance: FLUTICASONE

REACTIONS (2)
  - Dry skin [Unknown]
  - Product use in unapproved indication [Unknown]
